FAERS Safety Report 7794655-1 (Version None)
Quarter: 2011Q3

REPORT INFORMATION
  Report Type: 
  Country: None (occurrence: None)
  Receive Date: 20110930
  Receipt Date: 20110917
  Transmission Date: 20111222
  Serious: Yes (Death, Other)
  Sender: FDA-Public Use
  Company Number: ABR_00256_2011

PATIENT
  Age: 20 Year
  Sex: Male

DRUGS (6)
  1. ERYTHROMYCIN [Suspect]
     Indication: PRODUCT USED FOR UNKNOWN INDICATION
  2. TRICYCLIC ANTIDEPRESSANTS (TRICYCLIC ANTIDEPRESSANTS) [Suspect]
     Indication: PRODUCT USED FOR UNKNOWN INDICATION
     Dosage: (DF)
  3. IRON DEXTRAN [Suspect]
     Indication: PRODUCT USED FOR UNKNOWN INDICATION
     Dosage: (DF)
  4. LOPERAMIDE [Suspect]
     Indication: PRODUCT USED FOR UNKNOWN INDICATION
     Dosage: (DF)
  5. ACETAMINOPHEN [Suspect]
     Indication: PRODUCT USED FOR UNKNOWN INDICATION
  6. AMOXICILLIN [Suspect]
     Indication: PRODUCT USED FOR UNKNOWN INDICATION
     Dosage: (DF)

REACTIONS (9)
  - HEPATIC NECROSIS [None]
  - MULTIPLE DRUG OVERDOSE [None]
  - POISONING [None]
  - LIVER INJURY [None]
  - BRAIN OEDEMA [None]
  - ACUTE HEPATIC FAILURE [None]
  - TOXICITY TO VARIOUS AGENTS [None]
  - CHOLESTASIS [None]
  - BRAIN HERNIATION [None]
